FAERS Safety Report 25950243 (Version 1)
Quarter: 2025Q4

REPORT INFORMATION
  Report Type: Spontaneous
  Country: CN (occurrence: CN)
  Receive Date: 20251022
  Receipt Date: 20251022
  Transmission Date: 20260117
  Serious: Yes (Other)
  Sender: BEIGENE
  Company Number: CN-BEIGENE-BGN-2025-017878

PATIENT
  Age: 67 Year

DRUGS (3)
  1. TISLELIZUMAB [Suspect]
     Active Substance: TISLELIZUMAB
     Indication: Small cell lung cancer
     Dosage: UNK
  2. TISLELIZUMAB [Suspect]
     Active Substance: TISLELIZUMAB
     Dosage: UNK
  3. ETOPOSIDE [Concomitant]
     Active Substance: ETOPOSIDE
     Indication: Small cell lung cancer

REACTIONS (12)
  - Endocrine toxicity [Unknown]
  - Blood thyroid stimulating hormone decreased [Unknown]
  - Thyroxine free increased [Unknown]
  - Thyroxine increased [Unknown]
  - Tri-iodothyronine free increased [Unknown]
  - Tri-iodothyronine increased [Unknown]
  - Anti-thyroid antibody increased [Unknown]
  - Carbohydrate antigen 125 increased [Unknown]
  - Human epididymis protein 4 increased [Unknown]
  - Cancer screening abnormal [Unknown]
  - Gastrin-releasing peptide precursor increased [Unknown]
  - Blood corticotrophin increased [Unknown]
